FAERS Safety Report 22590350 (Version 8)
Quarter: 2025Q2

REPORT INFORMATION
  Report Type: Report from Study
  Country: CA (occurrence: CA)
  Receive Date: 20230612
  Receipt Date: 20250513
  Transmission Date: 20250716
  Serious: Yes (Hospitalization, Other)
  Sender: TAKEDA
  Company Number: CA-TAKEDA-2021TUS077342

PATIENT
  Age: 83 Year
  Sex: Male

DRUGS (19)
  1. VEDOLIZUMAB [Suspect]
     Active Substance: VEDOLIZUMAB
     Indication: Crohn^s disease
  2. VEDOLIZUMAB [Suspect]
     Active Substance: VEDOLIZUMAB
  3. VEDOLIZUMAB [Suspect]
     Active Substance: VEDOLIZUMAB
  4. VEDOLIZUMAB [Suspect]
     Active Substance: VEDOLIZUMAB
  5. VEDOLIZUMAB [Suspect]
     Active Substance: VEDOLIZUMAB
  6. VEDOLIZUMAB [Suspect]
     Active Substance: VEDOLIZUMAB
  7. VEDOLIZUMAB [Suspect]
     Active Substance: VEDOLIZUMAB
  8. VEDOLIZUMAB [Suspect]
     Active Substance: VEDOLIZUMAB
  9. VEDOLIZUMAB [Suspect]
     Active Substance: VEDOLIZUMAB
  10. PREDNISONE [Concomitant]
     Active Substance: PREDNISONE
  11. CLOPIDOGREL [Concomitant]
     Active Substance: CLOPIDOGREL BISULFATE
  12. PERINDOPRIL [Concomitant]
     Active Substance: PERINDOPRIL
  13. TAMSULOSIN [Concomitant]
     Active Substance: TAMSULOSIN
  14. VITAMIN D [Concomitant]
     Active Substance: VITAMIN D NOS
  15. CALCIUM [Concomitant]
     Active Substance: CALCIUM
  16. MAGNESIUM [Concomitant]
     Active Substance: MAGNESIUM
  17. FESOTERODINE [Concomitant]
     Active Substance: FESOTERODINE
     Dosage: 4 MILLIGRAM, BID
  18. SILODOSIN [Concomitant]
     Active Substance: SILODOSIN
     Dosage: 8 MILLIGRAM, QD
  19. PERINDOPRIL ERBUMINE [Concomitant]
     Active Substance: PERINDOPRIL ERBUMINE
     Dosage: 8 MILLIGRAM, QD

REACTIONS (8)
  - Intestinal obstruction [Unknown]
  - Chest pain [Unknown]
  - Fall [Unknown]
  - Feeling abnormal [Unknown]
  - Abdominal pain upper [Unknown]
  - Dyspnoea [Unknown]
  - Dizziness [Unknown]
  - Blood pressure increased [Unknown]

NARRATIVE: CASE EVENT DATE: 20211117
